FAERS Safety Report 4840648-3 (Version None)
Quarter: 2005Q4

REPORT INFORMATION
  Report Type: 
  Country: None (occurrence: None)
  Receive Date: 20051102
  Receipt Date: 20050524
  Transmission Date: 20060501
  Serious: No
  Sender: FDA-Public Use
  Company Number: 200511043BWH

PATIENT
  Age: 71 Year
  Sex: Male

DRUGS (4)
  1. LEVITRA [Suspect]
     Indication: ERECTILE DYSFUNCTION
     Dosage: 20 MG, PRN, ORAL
     Route: 048
  2. EYE DROPS [Concomitant]
  3. ASTHMA MEDICATION [Concomitant]
  4. PROTONIX [Concomitant]

REACTIONS (1)
  - DRUG INEFFECTIVE [None]
